FAERS Safety Report 4516483-2 (Version None)
Quarter: 2004Q4

REPORT INFORMATION
  Report Type: 
  Country: None (occurrence: None)
  Receive Date: 20041027
  Receipt Date: 20040720
  Transmission Date: 20050328
  Serious: No
  Sender: FDA-Public Use
  Company Number: US084343

PATIENT
  Sex: Male

DRUGS (8)
  1. SENSIPAR [Suspect]
     Indication: HYPERPARATHYROIDISM SECONDARY
     Dates: start: 20040101
  2. SEVELAMER HCL [Concomitant]
  3. FLUTICASONE PROPIONATE [Concomitant]
  4. FEXOFENADINE HYDROCHLORIDE [Concomitant]
  5. ACETYLSALICYLIC ACID [Concomitant]
  6. DOCUSATE SODIUM [Concomitant]
  7. RAMIPRIL [Concomitant]
  8. NADOLOL [Concomitant]

REACTIONS (4)
  - ABDOMINAL PAIN [None]
  - ANOREXIA [None]
  - NAUSEA [None]
  - WEIGHT DECREASED [None]
